FAERS Safety Report 4865627-1 (Version None)
Quarter: 2005Q4

REPORT INFORMATION
  Report Type: 
  Country: None (occurrence: None)
  Receive Date: 20051220
  Receipt Date: 20051207
  Transmission Date: 20060501
  Serious: Yes (Hospitalization, Other)
  Sender: FDA-Public Use
  Company Number: 2005165767

PATIENT
  Sex: Male
  Weight: 91.6266 kg

DRUGS (4)
  1. LIPITOR [Suspect]
     Indication: BLOOD CHOLESTEROL INCREASED
     Dosage: 20 MG (20 MG, 1 IN 1 D), ORAL
     Route: 048
     Dates: start: 19820101
  2. NORVASC [Concomitant]
  3. NITROGLYCERIN [Concomitant]
  4. DIURETICS (DIURETICS) [Concomitant]

REACTIONS (5)
  - CAROTID ARTERY OCCLUSION [None]
  - CEREBROVASCULAR ACCIDENT [None]
  - CORONARY ARTERY OCCLUSION [None]
  - HYPOTRICHOSIS [None]
  - NAIL DISORDER [None]
